FAERS Safety Report 7928662-2 (Version None)
Quarter: 2011Q4

REPORT INFORMATION
  Report Type: 
  Country: None (occurrence: None)
  Receive Date: 20111118
  Receipt Date: 20111109
  Transmission Date: 20120403
  Serious: Yes (Other)
  Sender: FDA-Public Use
  Company Number: US-US-EMD SERONO, INC.-7094866

PATIENT
  Sex: Female
  Weight: 72 kg

DRUGS (4)
  1. REBIF [Suspect]
     Route: 058
     Dates: start: 20110101
  2. GABAPENTIN [Concomitant]
     Indication: MULTIPLE SCLEROSIS
     Dates: start: 20090101
  3. VICODIN [Concomitant]
     Indication: MULTIPLE SCLEROSIS
     Dosage: 5/500 MG
     Dates: start: 20110425
  4. REBIF [Suspect]
     Indication: MULTIPLE SCLEROSIS
     Route: 058
     Dates: start: 20021202, end: 20110101

REACTIONS (2)
  - ESCHERICHIA URINARY TRACT INFECTION [None]
  - IMMUNODEFICIENCY [None]
